FAERS Safety Report 8130636-6 (Version None)
Quarter: 2012Q1

REPORT INFORMATION
  Report Type: 
  Country: None (occurrence: None)
  Receive Date: 20120213
  Receipt Date: 20120202
  Transmission Date: 20120608
  Serious: Yes (Hospitalization)
  Sender: FDA-Public Use
  Company Number: US-BIOGENIDEC-2012BI004336

PATIENT
  Age: 40 Year
  Sex: Female

DRUGS (1)
  1. TYSABRI [Suspect]
     Indication: MULTIPLE SCLEROSIS
     Route: 042
     Dates: start: 20110510

REACTIONS (9)
  - MULTIPLE SCLEROSIS RELAPSE [None]
  - ADVERSE DRUG REACTION [None]
  - CONCUSSION [None]
  - PHARYNGITIS STREPTOCOCCAL [None]
  - URINARY TRACT INFECTION [None]
  - PNEUMONIA [None]
  - FALL [None]
  - VERTIGO [None]
  - MUSCLE SPASMS [None]
